FAERS Safety Report 12735381 (Version 1)
Quarter: 2016Q3

REPORT INFORMATION
  Report Type: Spontaneous
  Country: US (occurrence: US)
  Receive Date: 20160912
  Receipt Date: 20160912
  Transmission Date: 20161109
  Serious: No
  Sender: FDA-Public Use
  Company Number: US-GLENMARK PHARMACEUTICALS INC, USA.-2016GMK022491

PATIENT
  Age: 51 Year
  Sex: Male

DRUGS (10)
  1. MORPHINE [Concomitant]
     Active Substance: MORPHINE
     Indication: BREAKTHROUGH PAIN
     Dosage: 2-4 MG, EVERY 3 HOURS, AS NEEDED
     Route: 042
  2. GABAPENTIN. [Suspect]
     Active Substance: GABAPENTIN
     Indication: PROCEDURAL PAIN
     Dosage: UNK
     Route: 065
  3. OXYCODONE [Interacting]
     Active Substance: OXYCODONE
     Indication: PROCEDURAL PAIN
     Dosage: 10 MG, BID (EVERY 12 HOURS)
     Route: 065
  4. OXYCODONE [Interacting]
     Active Substance: OXYCODONE
     Dosage: 5-15 MG, PRN (EVERY 3 HOURS)
     Route: 048
  5. ACETAMINOPHEN. [Concomitant]
     Active Substance: ACETAMINOPHEN
     Indication: PAIN
     Dosage: UNK
     Route: 065
  6. TIZANIDINE. [Concomitant]
     Active Substance: TIZANIDINE
     Indication: PAIN
     Dosage: UNK
     Route: 065
  7. RIFAMPICIN [Interacting]
     Active Substance: RIFAMPIN
     Indication: OSTEOMYELITIS ACUTE
     Dosage: UNK
     Route: 065
  8. MORPHINE [Concomitant]
     Active Substance: MORPHINE
     Dosage: 15-30 MG, EVERY 3 HOURS AS NEEDED
     Route: 048
  9. CIPROFLOXACIN. [Concomitant]
     Active Substance: CIPROFLOXACIN
     Indication: OSTEOMYELITIS ACUTE
     Dosage: UNK
     Route: 065
  10. MORPHINE [Concomitant]
     Active Substance: MORPHINE
     Dosage: 15 MG, BID (EVERY 12 HRS)
     Route: 048

REACTIONS (4)
  - Drug interaction [Unknown]
  - Drug ineffective [Unknown]
  - Off label use [Unknown]
  - Therapeutic response unexpected [Unknown]
